FAERS Safety Report 17112926 (Version 2)
Quarter: 2020Q1

REPORT INFORMATION
  Report Type: Spontaneous
  Country: SK (occurrence: SK)
  Receive Date: 20191204
  Receipt Date: 20200127
  Transmission Date: 20200409
  Serious: Yes (Death, Hospitalization, Other)
  Sender: FDA-Public Use
  Company Number: SK-PFIZER INC-2019523743

PATIENT
  Age: 45 Year
  Sex: Female

DRUGS (11)
  1. MATUZUMAB [Suspect]
     Active Substance: MATUZUMAB
     Indication: HER-2 POSITIVE BREAST CANCER
     Dosage: UNK
     Route: 065
  2. EPIRUBICIN HCL [Suspect]
     Active Substance: EPIRUBICIN HYDROCHLORIDE
     Indication: HER-2 POSITIVE BREAST CANCER
     Dosage: UNK
     Dates: start: 2019, end: 20190717
  3. ACETYLSALICYLIC ACID [Suspect]
     Active Substance: ASPIRIN
     Dosage: UNK
  4. CYCLOPHOSPHAMIDE. [Suspect]
     Active Substance: CYCLOPHOSPHAMIDE
     Indication: HER-2 POSITIVE BREAST CANCER
     Dosage: UNK
     Route: 065
     Dates: start: 2019, end: 20190717
  5. PERJETA [Suspect]
     Active Substance: PERTUZUMAB
     Indication: HER-2 POSITIVE BREAST CANCER
     Dosage: 840 MG, UNK (FIRST ADMINISTRATION)
     Route: 042
     Dates: start: 20190827, end: 20190827
  6. PARACETAMOL [Suspect]
     Active Substance: ACETAMINOPHEN
     Dosage: UNK
  7. DOCETAXEL. [Suspect]
     Active Substance: DOCETAXEL
     Indication: HER-2 POSITIVE BREAST CANCER
     Dosage: UNK
     Route: 042
     Dates: start: 201907
  8. PERJETA [Suspect]
     Active Substance: PERTUZUMAB
     Dosage: 420 MG, UNK (SECOND ADMINISTRATION)
     Route: 042
     Dates: start: 20191004, end: 20191004
  9. PACLITAXEL. [Suspect]
     Active Substance: PACLITAXEL
     Indication: HER-2 POSITIVE BREAST CANCER
     Dosage: UNK
     Route: 042
     Dates: start: 20190624
  10. FLUOROURACIL. [Suspect]
     Active Substance: FLUOROURACIL
     Indication: HER-2 POSITIVE BREAST CANCER
     Dosage: UNK
     Route: 065
     Dates: start: 2019, end: 20190717
  11. HERCEPTIN [Suspect]
     Active Substance: TRASTUZUMAB
     Indication: HER-2 POSITIVE BREAST CANCER
     Dosage: UNK
     Route: 042
     Dates: start: 20190624

REACTIONS (22)
  - Coagulopathy [Fatal]
  - Overdose [Fatal]
  - Dandy-Walker syndrome [Fatal]
  - Uterine leiomyoma [Fatal]
  - Erythema [Fatal]
  - Toxic epidermal necrolysis [Fatal]
  - Anaemia [Fatal]
  - Febrile neutropenia [Fatal]
  - Menorrhagia [Fatal]
  - Thrombocytopenia [Fatal]
  - Sopor [Fatal]
  - Heart valve incompetence [Fatal]
  - Hepatic failure [Fatal]
  - Hypertension [Fatal]
  - Asthma [Fatal]
  - Altered state of consciousness [Fatal]
  - Skin toxicity [Fatal]
  - Skin exfoliation [Fatal]
  - Hyperglycaemia [Fatal]
  - Lymphadenopathy [Fatal]
  - Hepatic steatosis [Fatal]
  - Polyneuropathy [Fatal]

NARRATIVE: CASE EVENT DATE: 201907
